FAERS Safety Report 17600215 (Version 1)
Quarter: 2020Q1

REPORT INFORMATION
  Report Type: Report from Study
  Country: US (occurrence: US)
  Receive Date: 20200330
  Receipt Date: 20200330
  Transmission Date: 20200409
  Serious: No
  Sender: FDA-Public Use
  Company Number: NVSC2020US081488

PATIENT
  Sex: Female

DRUGS (1)
  1. ENTRESTO [Suspect]
     Active Substance: SACUBITRIL\VALSARTAN
     Indication: PRODUCT USED FOR UNKNOWN INDICATION
     Dosage: 100 MG(49 MG SACUBITRIL/51 MG VALSARTAN), QD
     Route: 048
     Dates: start: 202002

REACTIONS (2)
  - Malaise [Unknown]
  - Blood glucose fluctuation [Not Recovered/Not Resolved]
